FAERS Safety Report 6724436-9 (Version None)
Quarter: 2010Q2

REPORT INFORMATION
  Report Type: 
  Country: None (occurrence: None)
  Receive Date: 20100513
  Receipt Date: 20100506
  Transmission Date: 20101027
  Serious: Yes (Other)
  Sender: FDA-Public Use
  Company Number: FR-PFIZER INC-2010057149

PATIENT
  Sex: Female

DRUGS (1)
  1. TAHOR [Suspect]
     Dosage: 20 MG, UNK

REACTIONS (2)
  - MUSCLE ATROPHY [None]
  - PARALYSIS [None]
